FAERS Safety Report 5344914-7 (Version None)
Quarter: 2007Q2

REPORT INFORMATION
  Report Type: 
  Country: None (occurrence: None)
  Receive Date: 20070417
  Receipt Date: 20060830
  Transmission Date: 20071010
  Serious: Yes (Other)
  Sender: FDA-Public Use
  Company Number: PHEH2006US11193

PATIENT

DRUGS (1)
  1. FORADIL [Suspect]
     Dosage: INHALATION
     Route: 055

REACTIONS (1)
  - ASTHMA [None]
